FAERS Safety Report 7681583 (Version 4)
Quarter: 2012Q4

REPORT INFORMATION
  Report Type: 
  Country: US (occurrence: US)
  Receive Date: 20101124
  Receipt Date: 20121105
  Transmission Date: 20130627
  Serious: Yes (Hospitalization, Other)
  Sender: FDA-Public Use
  Company Number: US-US-EMD SERONO, INC.-7028674

PATIENT
  Sex: Female
  Weight: 100 kg

DRUGS (3)
  1. REBIF [Suspect]
     Indication: MULTIPLE SCLEROSIS
     Route: 058
     Dates: start: 200910, end: 20101014
  2. REBIF [Suspect]
     Route: 058
     Dates: start: 20101130, end: 201112
  3. BUPROPION [Concomitant]
     Indication: FIBROMYALGIA

REACTIONS (4)
  - Decreased immune responsiveness [Recovering/Resolving]
  - Staphylococcal infection [Recovering/Resolving]
  - Suicidal behaviour [Recovered/Resolved]
  - Irritability [Recovered/Resolved]
